FAERS Safety Report 7355267-7 (Version None)
Quarter: 2011Q1

REPORT INFORMATION
  Report Type: 
  Country: None (occurrence: None)
  Receive Date: 20110316
  Receipt Date: 20110307
  Transmission Date: 20110831
  Serious: Yes (Hospitalization)
  Sender: FDA-Public Use
  Company Number: US-ELI_LILLY_AND_COMPANY-US201103002155

PATIENT
  Sex: Female
  Weight: 94.785 kg

DRUGS (16)
  1. CORTEF [Concomitant]
     Dosage: 10 MG, EACH MORNING
  2. SOMATROPIN [Suspect]
     Indication: HYPOPITUITARISM
     Dosage: 0.4 MG, DAILY (1/D)
     Route: 058
     Dates: end: 20100818
  3. CORTEF [Concomitant]
     Dosage: 5 MG, EACH EVENING
  4. METFORMIN HCL [Concomitant]
     Indication: TYPE 2 DIABETES MELLITUS
     Dosage: 1000 MG, 2/D
  5. BYETTA [Concomitant]
     Dosage: 10 UG, DAILY (1/D)
     Route: 058
     Dates: start: 20100819
  6. ATENOLOL [Concomitant]
     Dosage: 25 MG, DAILY (1/D)
  7. ERGOCALCIFEROL (VITAMIN D) [Concomitant]
     Indication: VITAMIN D DEFICIENCY
     Dosage: 6000 U, WEEKLY (1/W)
  8. CELEXA [Concomitant]
     Dosage: 40 MG, DAILY (1/D)
  9. SYNTHROID [Concomitant]
     Indication: HYPOTHYROIDISM
     Dosage: 200 UG, DAILY (1/D)
     Route: 048
  10. CRESTOR [Concomitant]
     Indication: HYPERLIPIDAEMIA
     Dosage: 10 MG, DAILY (1/D)
  11. LOVAZA [Concomitant]
     Indication: HYPERLIPIDAEMIA
     Dosage: 2 G, 2/D
  12. ENALAPRIL MALEATE [Concomitant]
     Dosage: 5 MG, UNK
  13. CALTRATE + D [Concomitant]
     Dosage: 600 MG, DAILY (1/D)
  14. BYETTA [Concomitant]
     Indication: TYPE 2 DIABETES MELLITUS
     Dosage: 10 UG, DAILY (1/D)
     Route: 058
  15. TRICOR [Concomitant]
     Indication: HYPERLIPIDAEMIA
     Dosage: 145 MG, DAILY (1/D)
  16. VITAMIN B-12 [Concomitant]
     Indication: VITAMIN B12 DEFICIENCY
     Dosage: 1000 UG, DAILY (1/D)

REACTIONS (1)
  - PITUITARY TUMOUR RECURRENT [None]
